FAERS Safety Report 24251584 (Version 2)
Quarter: 2024Q3

REPORT INFORMATION
  Report Type: Spontaneous
  Country: US (occurrence: US)
  Receive Date: 20240827
  Receipt Date: 20240828
  Transmission Date: 20241017
  Serious: No
  Sender: Haleon PLC
  Company Number: US-HALEON-2193640

PATIENT
  Sex: Female

DRUGS (1)
  1. ABREVA [Suspect]
     Active Substance: DOCOSANOL
     Indication: Oral herpes
     Dosage: EXPIRY DATE:2026-01?DOASGE-4 PUMPS
     Dates: start: 20240822, end: 20240824

REACTIONS (2)
  - Drug ineffective [Unknown]
  - Product complaint [Unknown]
